FAERS Safety Report 4892977-5 (Version None)
Quarter: 2005Q4

REPORT INFORMATION
  Report Type: 
  Country: None (occurrence: None)
  Receive Date: 20051223
  Receipt Date: 20050329
  Transmission Date: 20060501
  Serious: Yes (Hospitalization)
  Sender: FDA-Public Use
  Company Number: PHEH2005US03735

PATIENT
  Age: 24 Year
  Sex: Male

DRUGS (7)
  1. CLOZARIL [Suspect]
     Indication: SCHIZOAFFECTIVE DISORDER
     Dosage: 400 MG, QD, ORAL
     Route: 048
     Dates: start: 20031201, end: 20041201
  2. THORAZINE [Concomitant]
  3. ABILIFY [Concomitant]
  4. ATIVAN [Concomitant]
  5. KEPPRA [Concomitant]
  6. DEPAKOTE [Concomitant]
  7. ANTIEPILEPTICS (NO INGREDIENTS/SUBSTANCES) [Concomitant]

REACTIONS (1)
  - PETIT MAL EPILEPSY [None]
